FAERS Safety Report 4854317-7 (Version None)
Quarter: 2005Q4

REPORT INFORMATION
  Report Type: 
  Country: None (occurrence: None)
  Receive Date: 20051215
  Receipt Date: 20051122
  Transmission Date: 20060501
  Serious: Yes (Hospitalization)
  Sender: FDA-Public Use
  Company Number: JP-BOEHRINGER INGELHEIM PHARMACEUTICALS, INC.-2005-BP-20665NB

PATIENT
  Sex: Female
  Weight: 48 kg

DRUGS (6)
  1. MICARDIS [Suspect]
     Indication: HYPERTENSION
     Route: 048
     Dates: start: 20050423, end: 20051003
  2. MYONAL [Suspect]
     Indication: INTERVERTEBRAL DISC PROTRUSION
     Route: 048
     Dates: start: 20040510, end: 20051006
  3. LORCAM [Suspect]
     Indication: BACK PAIN
     Route: 048
     Dates: start: 20040510, end: 20051006
  4. OPALMON [Suspect]
     Route: 048
     Dates: start: 20050801, end: 20051006
  5. SHAKUYAKU-KANZO-TO [Suspect]
     Route: 048
     Dates: start: 20050510, end: 20050926
  6. MUCOSTA [Concomitant]
     Indication: GASTRITIS
     Route: 048
     Dates: start: 20040510, end: 20051006

REACTIONS (1)
  - PEMPHIGUS [None]
